FAERS Safety Report 9220700 (Version 1)
Quarter: 2013Q1

REPORT INFORMATION
  Report Type: Spontaneous
  Country: US (occurrence: None)
  Receive Date: 20120831
  Receipt Date: 20120831
  Transmission Date: 20140127
  Serious: No
  Sender: FDA-Public Use
  Company Number: 1000030342

PATIENT
  Age: 67 Year
  Sex: Male

DRUGS (3)
  1. DALIRESP [Suspect]
     Indication: CHRONIC OBSTRUCTIVE PULMONARY DISEASE
     Route: 048
     Dates: start: 20120430
  2. BLOOD PRESSURE MEDICATION (NOS) (BLOD MEDICATION (NOS)) (BLOOD MEDICATION (NOS)) [Concomitant]
  3. CHOLESTEROL MEDICAION (NOS) (CHOLESTEROL MEDICATION (NOS)) (CHOLESTEROL MEDICATION (NOS)) [Concomitant]

REACTIONS (3)
  - Nausea [None]
  - Insomnia [None]
  - Muscle spasms [None]
